FAERS Safety Report 4352298-6 (Version None)
Quarter: 2004Q2

REPORT INFORMATION
  Report Type: 
  Country: None (occurrence: None)
  Receive Date: 20040504
  Receipt Date: 20040423
  Transmission Date: 20050107
  Serious: Yes (Death, Life-Threatening)
  Sender: FDA-Public Use
  Company Number: 200411690FR

PATIENT
  Age: 37 Year
  Sex: Female

DRUGS (13)
  1. ARAVA [Suspect]
     Indication: RHEUMATOID ARTHRITIS
     Route: 048
     Dates: start: 20030804, end: 20040225
  2. METHOTREXATE [Suspect]
     Indication: RHEUMATOID ARTHRITIS
     Route: 042
     Dates: start: 20030503, end: 20030606
  3. MABTHERA [Suspect]
     Indication: LYMPHOMA
     Route: 042
     Dates: start: 20040305, end: 20040305
  4. ADRIAMYCIN PFS [Suspect]
     Indication: LYMPHOMA
     Route: 042
     Dates: start: 20040305, end: 20040305
  5. ENDOXAN [Suspect]
     Indication: LYMPHOMA
     Route: 042
     Dates: start: 20040302, end: 20040302
  6. SOLU-MEDROL [Suspect]
     Indication: LYMPHOMA
     Route: 042
     Dates: start: 20040302, end: 20040305
  7. PREDNISONE [Concomitant]
     Route: 048
     Dates: start: 20021007
  8. ACTONEL [Concomitant]
     Route: 048
  9. NOVATREX ^LEDERLE^ [Concomitant]
     Route: 048
     Dates: start: 20030106, end: 20030503
  10. SULFASALAZINE [Concomitant]
     Route: 048
     Dates: start: 20021201
  11. CACIT D3 [Concomitant]
     Route: 048
  12. DAFALGAN CODEINE [Concomitant]
     Route: 048
  13. INDOCIN [Concomitant]
     Route: 048
     Dates: start: 20021104, end: 20030606

REACTIONS (5)
  - ANAEMIA [None]
  - B-CELL LYMPHOMA [None]
  - DRUG INEFFECTIVE [None]
  - ESCHERICHIA SEPSIS [None]
  - SEPTIC SHOCK [None]
